FAERS Safety Report 21388315 (Version 1)
Quarter: 2022Q3

REPORT INFORMATION
  Report Type: Spontaneous
  Country: US (occurrence: US)
  Receive Date: 20220928
  Receipt Date: 20220928
  Transmission Date: 20221027
  Serious: No
  Sender: FDA-Public Use
  Company Number: US-PFIZER INC-202201190126

PATIENT
  Age: 45 Year
  Sex: Male

DRUGS (9)
  1. RITUXIMAB [Suspect]
     Active Substance: RITUXIMAB
     Indication: Acute lymphocytic leukaemia
     Dosage: 375MG/M2
     Dates: start: 202104
  2. RITUXIMAB [Suspect]
     Active Substance: RITUXIMAB
     Dosage: 375MG/M2
  3. RITUXIMAB [Suspect]
     Active Substance: RITUXIMAB
     Dosage: 375MG/M2
  4. RITUXIMAB [Suspect]
     Active Substance: RITUXIMAB
     Dosage: 375MG/M2
  5. RITUXIMAB [Suspect]
     Active Substance: RITUXIMAB
     Dosage: 375MG/M2
  6. RITUXIMAB [Suspect]
     Active Substance: RITUXIMAB
     Dosage: 375MG/M2
  7. RITUXIMAB [Suspect]
     Active Substance: RITUXIMAB
     Dosage: 375MG/M2
  8. RITUXIMAB [Suspect]
     Active Substance: RITUXIMAB
     Dosage: 375MG/M2
     Dates: end: 202108
  9. CYCLOPHOSPHAMIDE\DEXAMETHASONE\DOXORUBICIN\VINCRISTINE [Suspect]
     Active Substance: CYCLOPHOSPHAMIDE\DEXAMETHASONE\DOXORUBICIN\VINCRISTINE
     Indication: Acute lymphocytic leukaemia
     Dosage: UNK (8 CYCLES OF TREATMENT)

REACTIONS (2)
  - Off label use [Unknown]
  - Drug effective for unapproved indication [Unknown]
